FAERS Safety Report 8351966-9 (Version None)
Quarter: 2012Q2

REPORT INFORMATION
  Report Type: 
  Country: None (occurrence: None)
  Receive Date: 20120511
  Receipt Date: 20120430
  Transmission Date: 20120825
  Serious: Yes (Other)
  Sender: FDA-Public Use
  Company Number: US-ELI_LILLY_AND_COMPANY-US201111004992

PATIENT
  Sex: Female

DRUGS (3)
  1. FOSAMAX [Concomitant]
  2. FORTEO [Suspect]
     Indication: OSTEOPOROSIS
     Dosage: 20 UG, QD
     Route: 065
     Dates: start: 20091101, end: 20100301
  3. EVISTA [Suspect]
     Indication: OSTEOPOROSIS
     Dosage: 60 MG, QD
     Route: 065

REACTIONS (10)
  - HEAD INJURY [None]
  - FALL [None]
  - FEELING HOT [None]
  - MOVEMENT DISORDER [None]
  - NEPHROLITHIASIS [None]
  - MUSCULOSKELETAL DISCOMFORT [None]
  - SPINAL FRACTURE [None]
  - PAIN [None]
  - BONE DENSITY DECREASED [None]
  - DRUG INEFFECTIVE [None]
